FAERS Safety Report 6215585-2 (Version None)
Quarter: 2009Q2

REPORT INFORMATION
  Report Type: 
  Country: None (occurrence: None)
  Receive Date: 20090603
  Receipt Date: 20090603
  Transmission Date: 20091009
  Serious: Yes (Other)
  Sender: FDA-Public Use
  Company Number: None

PATIENT
  Sex: Male
  Weight: 77.1115 kg

DRUGS (2)
  1. PLAVIX [Suspect]
     Dosage: 75MG 1 PER DAY ORAL
     Route: 048
     Dates: start: 20080101, end: 20090101
  2. PLAVIX [Suspect]
     Dosage: 75MG 1 PER DAY ORAL
     Route: 048
     Dates: start: 20030101

REACTIONS (1)
  - APHTHOUS STOMATITIS [None]
